FAERS Safety Report 16223764 (Version 1)
Quarter: 2019Q2

REPORT INFORMATION
  Report Type: Spontaneous
  Country: US (occurrence: US)
  Receive Date: 20190419
  Receipt Date: 20190419
  Transmission Date: 20190711
  Serious: Yes (Hospitalization)
  Sender: FDA-Public Use
  Company Number: None

PATIENT
  Age: 64 Year
  Sex: Male
  Weight: 73 kg

DRUGS (2)
  1. ELIQUIS [Suspect]
     Active Substance: APIXABAN
  2. APIXABAN [Suspect]
     Active Substance: APIXABAN
     Route: 048

REACTIONS (3)
  - Haematocrit decreased [None]
  - Subdural haematoma [None]
  - Haemoglobin decreased [None]

NARRATIVE: CASE EVENT DATE: 20190320
